FAERS Safety Report 5775390-8 (Version None)
Quarter: 2008Q2

REPORT INFORMATION
  Report Type: 
  Country: None (occurrence: None)
  Receive Date: 20080612
  Receipt Date: 20080608
  Transmission Date: 20081010
  Serious: Yes (Other)
  Sender: FDA-Public Use
  Company Number: CHPA2008US09478

PATIENT
  Age: 77 Year
  Sex: Female

DRUGS (1)
  1. GAS-X EXTRA STR CHEWABLE TABLETS UNKNOWN (NCH) (SIMETHICONE) CHEWABLE [Suspect]
     Indication: FLATULENCE
     Dosage: 250 MG, ONCE/SINGLE, ORAL
     Route: 048
     Dates: start: 20080607, end: 20080607

REACTIONS (1)
  - VAGINAL HAEMORRHAGE [None]
